FAERS Safety Report 8468514-5 (Version None)
Quarter: 2012Q2

REPORT INFORMATION
  Report Type: 
  Country: None (occurrence: None)
  Receive Date: 20120619
  Receipt Date: 20120608
  Transmission Date: 20120825
  Serious: Yes (Hospitalization)
  Sender: FDA-Public Use
  Company Number: 2012AL000049

PATIENT
  Age: 62 Year
  Sex: Male
  Weight: 132.9039 kg

DRUGS (17)
  1. CYANOCOBALAMIN [Concomitant]
  2. DIAZEPAM [Concomitant]
  3. SILDENAFIL CITRATE [Concomitant]
  4. FOLIC ACID [Concomitant]
  5. BACITRACIN [Concomitant]
  6. OMEPRAZOLE [Concomitant]
  7. SODIUM FLUORIDE [Concomitant]
  8. TERAZOSIN HCL [Concomitant]
  9. ARTIFICIAL TEARS [Concomitant]
  10. HYDROCODONE BITARTRATE + ACETAMINOPHEN [Concomitant]
  11. METHOCARBAMOL [Concomitant]
  12. GABAPENTNI [Concomitant]
  13. INDAPAMIDE [Concomitant]
  14. PAROXETINE [Concomitant]
  15. POTASSIUM [Concomitant]
  16. PRALATREXATE (PRALATREXATE) [Suspect]
     Indication: MANTLE CELL LYMPHOMA
     Dosage: 60 MG;QW;IV
     Route: 042
     Dates: start: 20120307, end: 20120502
  17. MELOXICAM [Concomitant]

REACTIONS (14)
  - THROMBOCYTOPENIA [None]
  - PLATELET COUNT DECREASED [None]
  - TACHYCARDIA [None]
  - SEPSIS [None]
  - ASTHENIA [None]
  - DEVICE RELATED INFECTION [None]
  - ATRIAL FIBRILLATION [None]
  - STAPHYLOCOCCUS TEST POSITIVE [None]
  - ANAEMIA [None]
  - HAEMATOCRIT DECREASED [None]
  - TYPE 2 DIABETES MELLITUS [None]
  - ATRIAL FLUTTER [None]
  - HAEMOGLOBIN DECREASED [None]
  - RED BLOOD CELL COUNT DECREASED [None]
